FAERS Safety Report 25134429 (Version 1)
Quarter: 2025Q1

REPORT INFORMATION
  Report Type: Spontaneous
  Country: US (occurrence: None)
  Receive Date: 20250327
  Receipt Date: 20250327
  Transmission Date: 20250408
  Serious: Yes (Death)
  Sender: FDA-CTU
  Company Number: None

PATIENT
  Sex: Female

DRUGS (10)
  1. LENALIDOMIDE [Suspect]
     Active Substance: LENALIDOMIDE
     Indication: Plasma cell myeloma
     Route: 048
     Dates: start: 20250307
  2. ATORVASTATIN TAB 10MG [Concomitant]
  3. CALCIUM [Concomitant]
     Active Substance: CALCIUM
  4. CVANOCOBALAM [Concomitant]
  5. FAMOTIDINE [Concomitant]
     Active Substance: FAMOTIDINE
  6. MIRTAZAPINE [Concomitant]
     Active Substance: MIRTAZAPINE
  7. ONDANSETRON [Concomitant]
     Active Substance: ONDANSETRON
  8. PAIN + FEVER [Concomitant]
  9. PLAVIX [Concomitant]
     Active Substance: CLOPIDOGREL BISULFATE
  10. QUETIAPINE [Concomitant]
     Active Substance: QUETIAPINE

REACTIONS (1)
  - Death [None]
